FAERS Safety Report 12969117 (Version 3)
Quarter: 2016Q4

REPORT INFORMATION
  Report Type: Spontaneous
  Country: CH (occurrence: FR)
  Receive Date: 20161123
  Receipt Date: 20161222
  Transmission Date: 20170207
  Serious: Yes (Death, Hospitalization)
  Sender: FDA-Public Use
  Company Number: CH-LPDUSPRD-20161057

PATIENT
  Age: 93 Year
  Sex: Female

DRUGS (7)
  1. NEXIUM [Concomitant]
     Active Substance: ESOMEPRAZOLE MAGNESIUM
     Dosage: 40 MG
     Route: 048
  2. MIANSERIN [Concomitant]
     Active Substance: MIANSERIN
     Dosage: 10 MG
     Route: 048
  3. LANTUS [Concomitant]
     Active Substance: INSULIN GLARGINE
     Dosage: 8 UNITS
     Route: 058
     Dates: end: 20160811
  4. FERINJECT [Suspect]
     Active Substance: FERRIC CARBOXYMALTOSE
     Dosage: 1000 MG IN NSS
     Route: 041
     Dates: start: 20160729, end: 20160729
  5. KARDEGIC [Concomitant]
     Active Substance: ASPIRIN LYSINE
     Dosage: 75 MG
     Route: 048
     Dates: end: 20160811
  6. SEPCIAFOLDINE [Concomitant]
     Dosage: 5 MG
     Route: 048
  7. SERESTA [Concomitant]
     Active Substance: OXAZEPAM
     Dosage: 5 MG IN THE EVENING
     Route: 048
     Dates: end: 20160811

REACTIONS (3)
  - Sepsis [Fatal]
  - Skin discolouration [None]
  - Pruritus [Recovered/Resolved]

NARRATIVE: CASE EVENT DATE: 2016
